FAERS Safety Report 22014781 (Version 2)
Quarter: 2023Q2

REPORT INFORMATION
  Report Type: Spontaneous
  Country: JP (occurrence: JP)
  Receive Date: 20230221
  Receipt Date: 20230426
  Transmission Date: 20230722
  Serious: Yes (Hospitalization, Other)
  Sender: FDA-Public Use
  Company Number: None

PATIENT
  Age: 78 Year
  Sex: Male

DRUGS (11)
  1. PREDNISOLONE [Suspect]
     Active Substance: PREDNISOLONE
     Indication: Idiopathic inflammatory myopathy
     Dosage: 30 MILLIGRAM/DAY (FOR 2 WEEKS AND AFTER 2 WEEKS, A FURTHER REDUCTION OF 5 MG/DAY DOSE WAS DONE. ONCE
     Route: 065
     Dates: start: 2021, end: 2021
  2. PREDNISOLONE [Suspect]
     Active Substance: PREDNISOLONE
     Dosage: 1 MILLIGRAM/DAY/MONTH
     Route: 065
     Dates: start: 2021
  3. PREDNISOLONE [Suspect]
     Active Substance: PREDNISOLONE
     Dosage: 8 MILLIGRAM/DAY (SUBSEQUENTLY GRADUALLY REDUCED BY 1 MG/DAY EVERY MONTH)
     Route: 065
     Dates: start: 2021, end: 2021
  4. PREDNISOLONE [Suspect]
     Active Substance: PREDNISOLONE
     Dosage: UNK (DOSE WAS GRADUALLY DECREASED )
     Route: 065
     Dates: start: 2021
  5. PREDNISOLONE [Suspect]
     Active Substance: PREDNISOLONE
     Dosage: 25 MILLIGRAM, QD (REDUCTION OF 5 MG/DAY FOR 2 WEEKS)
     Route: 065
     Dates: start: 2021, end: 2021
  6. PREDNISOLONE [Suspect]
     Active Substance: PREDNISOLONE
     Dosage: 10 MILLIGRAM, QD
     Route: 065
     Dates: start: 2021, end: 2021
  7. TACROLIMUS [Suspect]
     Active Substance: TACROLIMUS
     Indication: Idiopathic inflammatory myopathy
     Dosage: 2 MILLIGRAM/DAY
     Route: 065
     Dates: start: 2021
  8. TACROLIMUS [Suspect]
     Active Substance: TACROLIMUS
     Dosage: DOSE OF TACROLIMUS WAS ADJUSTED
     Route: 065
     Dates: start: 2021
  9. TACROLIMUS [Suspect]
     Active Substance: TACROLIMUS
     Dosage: 2 MILLIGRAM/DAY
     Route: 065
     Dates: start: 2021, end: 2021
  10. METHYLPREDNISOLONE [Concomitant]
     Active Substance: METHYLPREDNISOLONE
     Indication: Idiopathic inflammatory myopathy
     Dosage: 1000 MILLIGRAM/DAY (PULSE THERAPY FOR 3 DAYS)
     Route: 065
     Dates: start: 2021, end: 2021
  11. Immunoglobulin [Concomitant]
     Indication: Idiopathic inflammatory myopathy
     Dosage: 5000 MILLIGRAM, QD, HIGH DOSE
     Route: 065
     Dates: start: 2021

REACTIONS (2)
  - Alveolar proteinosis [Unknown]
  - Off label use [Unknown]

NARRATIVE: CASE EVENT DATE: 20210101
